FAERS Safety Report 15494057 (Version 1)
Quarter: 2018Q4

REPORT INFORMATION
  Report Type: Spontaneous
  Country: GR (occurrence: GR)
  Receive Date: 20181012
  Receipt Date: 20181012
  Transmission Date: 20190205
  Serious: Yes (Other)
  Sender: FDA-Public Use
  Company Number: GR-SA-2018SA279535

PATIENT
  Sex: Female

DRUGS (1)
  1. AUBAGIO [Suspect]
     Active Substance: TERIFLUNOMIDE
     Dosage: UNK
     Dates: start: 201805, end: 201810

REACTIONS (5)
  - Gait disturbance [Unknown]
  - Fatigue [Unknown]
  - Product use issue [Unknown]
  - Leukopenia [Unknown]
  - Alopecia [Unknown]
